FAERS Safety Report 15916776 (Version 1)
Quarter: 2019Q1

REPORT INFORMATION
  Report Type: Spontaneous
  Country: NL (occurrence: NL)
  Receive Date: 20190205
  Receipt Date: 20190205
  Transmission Date: 20190417
  Serious: Yes (Hospitalization)
  Sender: FDA-Public Use
  Company Number: NL-TEVA-2019-NL-1007923

PATIENT
  Age: 73 Year
  Sex: Female
  Weight: 86 kg

DRUGS (4)
  1. BISOPROLOL TABLET, 1,25 MG (MILLIGRAM) [Suspect]
     Active Substance: BISOPROLOL
     Indication: ARRHYTHMIA
     Dosage: 1,25MG
     Route: 065
     Dates: start: 20180919
  2. OXAZEPAM 10MG [Concomitant]
     Active Substance: OXAZEPAM
  3. FLUOXETINE [Concomitant]
     Active Substance: FLUOXETINE HYDROCHLORIDE
  4. OMEPRAZOL 40MG [Concomitant]

REACTIONS (5)
  - Decreased appetite [Not Recovered/Not Resolved]
  - Diarrhoea [Not Recovered/Not Resolved]
  - Dizziness [Not Recovered/Not Resolved]
  - Asthenia [Not Recovered/Not Resolved]
  - Rhinorrhoea [Not Recovered/Not Resolved]

NARRATIVE: CASE EVENT DATE: 20180927
